FAERS Safety Report 25051553 (Version 3)
Quarter: 2025Q1

REPORT INFORMATION
  Report Type: Spontaneous
  Country: PL (occurrence: PL)
  Receive Date: 20250307
  Receipt Date: 20250331
  Transmission Date: 20250409
  Serious: Yes (Hospitalization, Disabling, Other)
  Sender: SANOFI AVENTIS
  Company Number: None

PATIENT
  Age: 83 Year
  Sex: Female
  Weight: 91 kg

DRUGS (29)
  1. METOCLOPRAMIDE HYDROCHLORIDE [Suspect]
     Active Substance: METOCLOPRAMIDE HYDROCHLORIDE
     Indication: Constipation
  2. HYDROXYZINE [Suspect]
     Active Substance: HYDROXYZINE HYDROCHLORIDE
     Indication: Product used for unknown indication
  3. ZOLPIDEM TARTRATE [Suspect]
     Active Substance: ZOLPIDEM TARTRATE
     Indication: Depression
     Dosage: 10 MG, QD (0-0-1)
  4. ALPRAZOLAM [Suspect]
     Active Substance: ALPRAZOLAM
     Indication: Depression
  5. HYDROCHLOROTHIAZIDE [Suspect]
     Active Substance: HYDROCHLOROTHIAZIDE
     Indication: Product used for unknown indication
     Dosage: 25 MG, QD (1-0-0)
  6. GLICLAZIDE [Suspect]
     Active Substance: GLICLAZIDE
     Indication: Type 2 diabetes mellitus
     Dosage: 60 MG, TID
  7. ALLOPURINOL [Concomitant]
     Active Substance: ALLOPURINOL
     Indication: Product used for unknown indication
     Dosage: 100 MG, QD
     Route: 048
  8. ALLOPURINOL [Concomitant]
     Active Substance: ALLOPURINOL
     Dosage: 50 MG, QD
     Route: 048
  9. ALLOPURINOL [Concomitant]
     Active Substance: ALLOPURINOL
     Indication: Product used for unknown indication
     Dosage: 1 DF, QD (1-0-0)
  10. VOREDANIN [Concomitant]
     Indication: Product used for unknown indication
     Dosage: 20 MG, QD (0-0-1)
  11. BETAHISTINE [Concomitant]
     Active Substance: BETAHISTINE
     Indication: Dizziness
     Dosage: 24 MG, QD (0-1-0)
  12. CITALOPRAM [Concomitant]
     Active Substance: CITALOPRAM
     Indication: Depression
     Dosage: 1 DF, QD 1-0-0
  13. DABIGATRAN [Concomitant]
     Active Substance: DABIGATRAN
     Indication: Product used for unknown indication
     Dosage: 110 MG, QD 1-0-1
  14. FUROSEMIDE [Concomitant]
     Active Substance: FUROSEMIDE
     Indication: Product used for unknown indication
     Dosage: 40 MG 3 TABLETS EVERY SECOND DAY
  15. ISOSORBIDE MONONITRATE [Concomitant]
     Active Substance: ISOSORBIDE MONONITRATE
     Indication: Product used for unknown indication
     Dosage: 50 MG, QD AS NECESSARY, 1-2X/24 H ON AVERAGE
  16. LEVOTHYROXINE [Concomitant]
     Active Substance: LEVOTHYROXINE
     Indication: Product used for unknown indication
     Dosage: 100 UG, QD 1-0-0
  17. MEPOLOL [Concomitant]
     Indication: Product used for unknown indication
     Dosage: 50 MG 1-0-1
  18. MEPOLOL [Concomitant]
  19. OMEPRAZOLE [Concomitant]
     Active Substance: OMEPRAZOLE
     Indication: Product used for unknown indication
     Dosage: 20 MG 1-1-0
  20. ACENOL [PARACETAMOL] [Concomitant]
     Indication: Product used for unknown indication
     Dosage: 500 MG, QD 0-0-1
  21. ACENOL [PARACETAMOL] [Concomitant]
     Dosage: 500 MG, QD 1-0-1
  22. POTASSIUM CHLORIDE [Concomitant]
     Active Substance: POTASSIUM CHLORIDE
     Indication: Product used for unknown indication
     Dosage: 391 MG, QOD 1 TABLET EVERY SECOND DAY
  23. RAMIPRIL [Concomitant]
     Active Substance: RAMIPRIL
     Indication: Product used for unknown indication
     Dosage: 5 MG, QD 1-0-0
  24. ALBUTEROL [Concomitant]
     Active Substance: ALBUTEROL
     Indication: Product used for unknown indication
  25. SPIRONOLACTONE [Concomitant]
     Active Substance: SPIRONOLACTONE
     Indication: Product used for unknown indication
     Dosage: 100 MG, QD 0-1-0
  26. TORSEMIDE [Concomitant]
     Active Substance: TORSEMIDE
     Indication: Product used for unknown indication
     Route: 048
  27. PIRALGIN [TRAMADOL] [Concomitant]
     Indication: Product used for unknown indication
     Dosage: 200 MG, QD 2 TABLETS AS NECESSARY, IF NEEDED
  28. PIRALGIN [TRAMADOL] [Concomitant]
  29. GLUCARDIAMID [Concomitant]
     Indication: Product used for unknown indication

REACTIONS (14)
  - Fall [Unknown]
  - Parkinsonism [Recovering/Resolving]
  - Orthostatic hypotension [Unknown]
  - Motor dysfunction [Recovering/Resolving]
  - Mobility decreased [Recovering/Resolving]
  - Muscle rigidity [Unknown]
  - Bradykinesia [Unknown]
  - Dizziness [Unknown]
  - Osteoporosis [Unknown]
  - Hypotonia [Recovering/Resolving]
  - Sedation complication [Recovering/Resolving]
  - Dementia [Unknown]
  - Hypoglycaemia [Recovered/Resolved]
  - Urinary retention [Unknown]
